FAERS Safety Report 7641415-8 (Version None)
Quarter: 2011Q3

REPORT INFORMATION
  Report Type: 
  Country: None (occurrence: None)
  Receive Date: 20110728
  Receipt Date: 20110721
  Transmission Date: 20111222
  Serious: Yes (Other)
  Sender: FDA-Public Use
  Company Number: CA-PFIZER INC-2011167093

PATIENT
  Age: 82 Year
  Sex: Female

DRUGS (5)
  1. COZAAR [Concomitant]
     Indication: HYPERTENSION
     Dosage: 1 TAB, 1X/DAY
  2. WARFARIN [Concomitant]
     Indication: THROMBOSIS PROPHYLAXIS
     Dosage: 3.5 TABS WEEKLY
  3. XALATAN [Suspect]
     Indication: GLAUCOMA
     Dosage: 1 GTT IN BOTH EYES, 1X/DAY
     Route: 047
  4. CRESTOR [Concomitant]
     Indication: BLOOD CHOLESTEROL INCREASED
     Dosage: 1 TAB DAILY
  5. VERAPAMIL [Concomitant]
     Indication: HYPERTENSION
     Dosage: 2 TABS DAILY

REACTIONS (2)
  - EYE DISORDER [None]
  - DIPLOPIA [None]
